FAERS Safety Report 7359933-9 (Version None)
Quarter: 2011Q1

REPORT INFORMATION
  Report Type: 
  Country: None (occurrence: None)
  Receive Date: 20110317
  Receipt Date: 20110309
  Transmission Date: 20110831
  Serious: Yes (Other)
  Sender: FDA-Public Use
  Company Number: CH-ASTRAZENECA-2011SE13147

PATIENT
  Age: 9 Year
  Sex: Male

DRUGS (19)
  1. LEXOTANIL [Suspect]
     Route: 042
     Dates: start: 20110223
  2. ROCEPHIN [Suspect]
     Route: 051
     Dates: start: 20110213, end: 20110218
  3. CLINDAMYCIN HCL [Concomitant]
     Dates: start: 20110213, end: 20110218
  4. ACYCLOVIR [Concomitant]
     Dates: start: 20110221, end: 20110222
  5. DOBUTAMIN [Concomitant]
     Dates: start: 20110213, end: 20110216
  6. NEXIUM [Concomitant]
  7. MERONEM [Concomitant]
     Dates: start: 20110222
  8. VANCOMYCIN [Concomitant]
     Dates: start: 20110218
  9. DORMICUM [Concomitant]
     Dates: start: 20110213, end: 20110217
  10. FENTANYL [Concomitant]
     Dates: start: 20110213, end: 20110217
  11. NORADRENALIN [Concomitant]
     Dates: start: 20110213, end: 20110216
  12. KETALAR [Concomitant]
     Dates: start: 20110216, end: 20110217
  13. CATAPRESAN [Suspect]
     Route: 042
     Dates: start: 20110218, end: 20110219
  14. LASIX [Concomitant]
     Dates: start: 20110219, end: 20110222
  15. CEPROTIN [Concomitant]
     Dates: start: 20110214, end: 20110216
  16. FLOXAPEN [Suspect]
     Route: 042
     Dates: start: 20110218
  17. PROPOFOL [Suspect]
     Route: 042
     Dates: start: 20110213, end: 20110216
  18. MORPHINE [Suspect]
     Route: 042
     Dates: start: 20110213, end: 20110222
  19. ANEXATE [Concomitant]
     Dates: start: 20110221, end: 20110221

REACTIONS (1)
  - COMA [None]
